FAERS Safety Report 5095398-8 (Version None)
Quarter: 2006Q3

REPORT INFORMATION
  Report Type: 
  Country: None (occurrence: None)
  Receive Date: 20060901
  Receipt Date: 20060825
  Transmission Date: 20061208
  Serious: Yes (Other)
  Sender: FDA-Public Use
  Company Number: US-BRISTOL-MYERS SQUIBB COMPANY-13489745

PATIENT
  Age: 55 Year
  Sex: Female
  Weight: 93 kg

DRUGS (1)
  1. CARDIOLITE [Suspect]
     Indication: CARDIAC STRESS TEST
     Dosage: DOSAGE: 10MG/1ML
     Route: 030
     Dates: start: 20060816, end: 20060816

REACTIONS (3)
  - HYPERTENSION [None]
  - MIGRAINE [None]
  - MUSCULOSKELETAL STIFFNESS [None]
